FAERS Safety Report 4581216-0 (Version None)
Quarter: 2005Q1

REPORT INFORMATION
  Report Type: 
  Country: None (occurrence: None)
  Receive Date: 20050214
  Receipt Date: 20040902
  Transmission Date: 20050727
  Serious: No
  Sender: FDA-Public Use
  Company Number: US-GLAXOSMITHKLINE-A0524492A

PATIENT
  Age: 54 Year
  Sex: Female

DRUGS (21)
  1. LAMICTAL [Suspect]
     Dosage: 100MG PER DAY
     Route: 048
  2. COLACE [Concomitant]
  3. CEFTIN [Concomitant]
  4. PROTONIX [Concomitant]
  5. MULTI-VITAMIN [Concomitant]
  6. SINGULAIR [Concomitant]
  7. NEURONTIN [Concomitant]
  8. LIPITOR [Concomitant]
  9. LEXAPRO [Concomitant]
  10. KLONOPIN [Concomitant]
  11. PERCOCET [Concomitant]
  12. BUMEX [Concomitant]
  13. MIRALAX [Concomitant]
  14. LOVENOX [Concomitant]
  15. COREG [Concomitant]
  16. REGLAN [Concomitant]
  17. DIOVAN [Concomitant]
  18. POTASSIUM CHLORIDE [Concomitant]
  19. GLUCOTROL [Concomitant]
  20. AMBIEN [Concomitant]
  21. NOVOLOG [Concomitant]

REACTIONS (1)
  - RASH [None]
